FAERS Safety Report 8966323 (Version 2)
Quarter: 2013Q1

REPORT INFORMATION
  Report Type: Spontaneous
  Country: US (occurrence: US)
  Receive Date: 20121216
  Receipt Date: 20130215
  Transmission Date: 20140127
  Serious: Yes (Death, Hospitalization, Other)
  Sender: FDA-Public Use
  Company Number: US-BRISTOL-MYERS SQUIBB COMPANY-17178120

PATIENT
  Sex: Female

DRUGS (1)
  1. SPRYCEL [Suspect]
     Dosage: ON 140 MG FOR 10 DAYS IN JAN-2012 .CURRENTLY AT 40MG ONCE DAILY
     Dates: start: 201201

REACTIONS (6)
  - Blast cell crisis [Fatal]
  - White blood cell count decreased [Recovering/Resolving]
  - Ear infection [Unknown]
  - Deafness unilateral [Unknown]
  - Splenomegaly [Unknown]
  - Fluid retention [Unknown]
